FAERS Safety Report 23544998 (Version 2)
Quarter: 2024Q1

REPORT INFORMATION
  Report Type: Report from Study
  Country: US (occurrence: US)
  Receive Date: 20240220
  Receipt Date: 20240307
  Transmission Date: 20240409
  Serious: Yes (Hospitalization)
  Sender: FDA-Public Use
  Company Number: US-002147023-NVSC2024US028099

PATIENT
  Sex: Female

DRUGS (3)
  1. PIQRAY [Suspect]
     Active Substance: ALPELISIB
     Indication: Breast cancer female
     Dosage: UNK
     Route: 065
  2. PIQRAY [Suspect]
     Active Substance: ALPELISIB
     Dosage: 200 MG APPROX.
     Route: 065
     Dates: start: 20240204, end: 20240204
  3. MORPHINE [Concomitant]
     Active Substance: MORPHINE
     Indication: Product used for unknown indication
     Dosage: UNK
     Route: 065

REACTIONS (3)
  - Metastases to spine [Unknown]
  - Nerve compression [Unknown]
  - Musculoskeletal pain [Unknown]
